FAERS Safety Report 7183831-7 (Version None)
Quarter: 2010Q4

REPORT INFORMATION
  Report Type: 
  Country: None (occurrence: None)
  Receive Date: 20101222
  Receipt Date: 20101216
  Transmission Date: 20110411
  Serious: Yes (Other)
  Sender: FDA-Public Use
  Company Number: TR-BAXTER-2010BH029702

PATIENT
  Age: 5 Year
  Sex: Female
  Weight: 20 kg

DRUGS (3)
  1. GAMMAGARD LIQUID [Suspect]
     Indication: HYPOGAMMAGLOBULINAEMIA
     Route: 042
     Dates: start: 20101125, end: 20101125
  2. AUGMENTIN '125' [Concomitant]
     Indication: INFECTION
  3. PAROL [Concomitant]
     Indication: ANALGESIC THERAPY

REACTIONS (3)
  - CHILLS [None]
  - PYREXIA [None]
  - RASH [None]
